FAERS Safety Report 17016223 (Version 2)
Quarter: 2020Q1

REPORT INFORMATION
  Report Type: Spontaneous
  Country: TR (occurrence: TR)
  Receive Date: 20191111
  Receipt Date: 20200124
  Transmission Date: 20200409
  Serious: Yes (Hospitalization)
  Sender: FDA-Public Use
  Company Number: TR-TEVA-2019-TR-1135016

PATIENT
  Age: 23 Year
  Sex: Female

DRUGS (1)
  1. PREGABALIN. [Suspect]
     Active Substance: PREGABALIN
     Indication: SUBSTANCE USE
     Dosage: THE WOMAN ADMINISTERED NASAL INHALATION OF 10-15 CAPSULES OF PREGABALIN 300MG FOR RECREATIONAL PUR.
     Route: 045

REACTIONS (8)
  - Loss of consciousness [Recovered/Resolved]
  - Intentional overdose [Unknown]
  - Dyskinesia [Recovered/Resolved]
  - Lethargy [Recovered/Resolved]
  - Dizziness [Recovered/Resolved]
  - Myoclonic epilepsy [Recovered/Resolved]
  - Drug abuse [Unknown]
  - Patient uncooperative [Recovered/Resolved]
